FAERS Safety Report 23729010 (Version 3)
Quarter: 2024Q2

REPORT INFORMATION
  Report Type: Spontaneous
  Country: US (occurrence: None)
  Receive Date: 20240410
  Receipt Date: 20240418
  Transmission Date: 20240716
  Serious: Yes (Hospitalization)
  Sender: FDA-Public Use
  Company Number: 2024A084607

PATIENT
  Age: 53 Year
  Sex: Female

DRUGS (6)
  1. TRUQAP [Suspect]
     Active Substance: CAPIVASERTIB
     Indication: Breast cancer metastatic
     Route: 048
  2. IBRANCE [Concomitant]
     Active Substance: PALBOCICLIB
  3. LETROZOLE [Concomitant]
     Active Substance: LETROZOLE
  4. FASLODEX [Concomitant]
     Active Substance: FULVESTRANT
     Indication: Breast cancer
     Route: 030
  5. AFINITOR [Concomitant]
     Active Substance: EVEROLIMUS
  6. EXEMESTANE [Concomitant]
     Active Substance: EXEMESTANE

REACTIONS (6)
  - Hypersensitivity [Not Recovered/Not Resolved]
  - Pyrexia [Unknown]
  - Angioedema [Unknown]
  - Rash [Unknown]
  - Hypotension [Unknown]
  - Anaphylactic reaction [Unknown]

NARRATIVE: CASE EVENT DATE: 20240407
